FAERS Safety Report 20616076 (Version 1)
Quarter: 2022Q1

REPORT INFORMATION
  Report Type: Spontaneous
  Country: US (occurrence: US)
  Receive Date: 20220321
  Receipt Date: 20220321
  Transmission Date: 20220423
  Serious: No
  Sender: FDA-Public Use
  Company Number: US-drreddys-SPO/USA/22/0147781

PATIENT
  Age: 23 Year
  Sex: Female

DRUGS (1)
  1. ZENATANE [Suspect]
     Active Substance: ISOTRETINOIN
     Indication: Product used for unknown indication
     Dosage: RMA ISSUE DATE: 27 DECEMBER 2021 02:23:59 PM, 14 JANUARY 2022 10:56:31 AM, 11 FEBRUARY 2022 03:46:19

REACTIONS (1)
  - Treatment noncompliance [Unknown]
